FAERS Safety Report 14008165 (Version 1)
Quarter: 2017Q3

REPORT INFORMATION
  Report Type: Spontaneous
  Country: US (occurrence: None)
  Receive Date: 20170924
  Receipt Date: 20170924
  Transmission Date: 20171128
  Serious: Yes (Hospitalization)
  Sender: FDA-Public Use
  Company Number: None

PATIENT
  Age: 77 Year
  Sex: Female
  Weight: 75.9 kg

DRUGS (4)
  1. NEULASTA [Suspect]
     Active Substance: PEGFILGRASTIM
     Dates: end: 20110817
  2. TAXOL [Suspect]
     Active Substance: PACLITAXEL
     Dates: end: 20111115
  3. DOXORUBICIN HYDROCHLORIDE. [Suspect]
     Active Substance: DOXORUBICIN HYDROCHLORIDE
     Dates: end: 20110816
  4. CYCLOPHOSPHAMIDE. [Suspect]
     Active Substance: CYCLOPHOSPHAMIDE
     Dates: end: 20110816

REACTIONS (5)
  - Mediastinal mass [None]
  - Pericardial effusion [None]
  - Fatigue [None]
  - Dyspnoea [None]
  - Metastatic neoplasm [None]

NARRATIVE: CASE EVENT DATE: 20170627
